FAERS Safety Report 18962614 (Version 2)
Quarter: 2022Q3

REPORT INFORMATION
  Report Type: Spontaneous
  Country: CA (occurrence: CA)
  Receive Date: 20210303
  Receipt Date: 20220711
  Transmission Date: 20221027
  Serious: Yes (Other)
  Sender: FDA-Public Use
  Company Number: CA-GLAXOSMITHKLINE-CA2020AMR221144

PATIENT

DRUGS (5)
  1. ZEJULA [Suspect]
     Active Substance: NIRAPARIB
     Indication: Ovarian epithelial cancer recurrent
     Dosage: 200 MG, QD
     Route: 048
     Dates: start: 20201005
  2. ZEJULA [Suspect]
     Active Substance: NIRAPARIB
     Indication: Fallopian tube cancer
  3. ZEJULA [Suspect]
     Active Substance: NIRAPARIB
     Indication: Malignant peritoneal neoplasm
  4. NITRAZEPAM [Suspect]
     Active Substance: NITRAZEPAM
     Indication: Sleep disorder
     Dosage: UNK
  5. TEMAZEPAM [Suspect]
     Active Substance: TEMAZEPAM
     Indication: Sleep disorder
     Dosage: UNK

REACTIONS (11)
  - Ascites [Unknown]
  - Muscular weakness [Recovering/Resolving]
  - Headache [Recovering/Resolving]
  - Arthralgia [Recovering/Resolving]
  - Abdominal pain [Recovering/Resolving]
  - Dizziness [Recovered/Resolved]
  - Carbohydrate antigen 125 increased [Not Recovered/Not Resolved]
  - Somnolence [Unknown]
  - Nausea [Unknown]
  - Stomatitis [Recovering/Resolving]
  - Disease progression [Unknown]

NARRATIVE: CASE EVENT DATE: 20201106
